FAERS Safety Report 21759409 (Version 3)
Quarter: 2023Q2

REPORT INFORMATION
  Report Type: Report from Study
  Country: US (occurrence: US)
  Receive Date: 20221221
  Receipt Date: 20230504
  Transmission Date: 20230722
  Serious: Yes (Hospitalization)
  Sender: FDA-Public Use
  Company Number: US-TAKEDA-2022TUS098173

PATIENT
  Age: 60 Year
  Sex: Male

DRUGS (8)
  1. TEDUGLUTIDE [Suspect]
     Active Substance: TEDUGLUTIDE
     Indication: Short-bowel syndrome
     Dosage: 3.22 MILLIGRAM, QD
     Route: 042
     Dates: start: 20220118
  2. TEDUGLUTIDE [Suspect]
     Active Substance: TEDUGLUTIDE
     Indication: Short-bowel syndrome
     Dosage: 3.22 MILLIGRAM, QD
     Route: 042
     Dates: start: 20220118
  3. TEDUGLUTIDE [Suspect]
     Active Substance: TEDUGLUTIDE
     Indication: Short-bowel syndrome
     Dosage: 3.22 MILLIGRAM, QD
     Route: 042
     Dates: start: 20220118
  4. TEDUGLUTIDE [Suspect]
     Active Substance: TEDUGLUTIDE
     Indication: Short-bowel syndrome
     Dosage: 3.22 MILLIGRAM, QD
     Route: 042
     Dates: start: 20220118
  5. BENZOCAINE/MENTHOL [Concomitant]
     Indication: Oropharyngeal pain
     Dosage: 1 DOSAGE FORM
     Route: 048
     Dates: start: 20220316
  6. CAMPHOR [Concomitant]
     Active Substance: CAMPHOR
     Indication: Pruritus
     Dosage: UNK
     Route: 061
     Dates: start: 20220316
  7. MENTHOL [Concomitant]
     Active Substance: MENTHOL
     Indication: Pruritus
     Dosage: UNK
     Route: 061
     Dates: start: 20220316
  8. LACTOBACILLUS RHAMNOSUS [Concomitant]
     Active Substance: LACTOBACILLUS RHAMNOSUS
     Indication: Probiotic therapy
     Dosage: 1 DOSAGE FORM
     Route: 048
     Dates: start: 20220406

REACTIONS (1)
  - Fistula [Recovered/Resolved]

NARRATIVE: CASE EVENT DATE: 20220403
